FAERS Safety Report 15676324 (Version 1)
Quarter: 2018Q4

REPORT INFORMATION
  Report Type: Spontaneous
  Country: ZA (occurrence: ZA)
  Receive Date: 20181130
  Receipt Date: 20181130
  Transmission Date: 20190205
  Serious: Yes (Death, Other)
  Sender: FDA-Public Use
  Company Number: ZA-PFIZER INC-2018487596

PATIENT
  Age: 82 Year
  Sex: Female

DRUGS (3)
  1. REFRESH LIQUIGEL [Suspect]
     Active Substance: CARBOXYMETHYLCELLULOSE SODIUM
     Dosage: UNK
  2. LOMANOR [Suspect]
     Active Substance: AMLODIPINE BESYLATE
     Dosage: 10 MG, UNK
  3. BIO ATENOLOL [Suspect]
     Active Substance: ATENOLOL
     Dosage: 50 MG, UNK

REACTIONS (1)
  - Death [Fatal]
